FAERS Safety Report 24027758 (Version 1)
Quarter: 2024Q2

REPORT INFORMATION
  Report Type: Spontaneous
  Country: PL (occurrence: PL)
  Receive Date: 20240628
  Receipt Date: 20240628
  Transmission Date: 20240716
  Serious: Yes (Hospitalization, Other)
  Sender: FDA-Public Use
  Company Number: PL-ASTELLAS-2024EU006245

PATIENT
  Age: 39 Year
  Sex: Female

DRUGS (3)
  1. TACROLIMUS [Suspect]
     Active Substance: TACROLIMUS
     Indication: Renal transplant
     Dosage: UNK UNK, UNKNOWN FREQ.
     Route: 065
     Dates: start: 20221214
  2. THYMOGLOBULIN [Concomitant]
     Active Substance: LAPINE T-LYMPHOCYTE IMMUNE GLOBULIN
     Indication: Renal transplant
     Dosage: UNK UNK, UNKNOWN FREQ.
     Route: 065
     Dates: start: 20221214
  3. MYCOPHENOLATE MOFETIL [Concomitant]
     Active Substance: MYCOPHENOLATE MOFETIL
     Indication: Renal transplant
     Dosage: UNK UNK, UNKNOWN FREQ.
     Route: 065
     Dates: start: 20221214

REACTIONS (12)
  - Pathogen resistance [Recovered/Resolved]
  - Klebsiella infection [Recovered/Resolved]
  - Urosepsis [Recovered/Resolved]
  - Acute kidney injury [Recovered/Resolved]
  - Norovirus infection [Unknown]
  - Viral diarrhoea [Unknown]
  - Klebsiella urinary tract infection [Recovered/Resolved]
  - Enterococcal infection [Unknown]
  - Urinary tract infection enterococcal [Unknown]
  - Candida infection [Unknown]
  - Urinary tract candidiasis [Unknown]
  - Urinary tract infection [Unknown]

NARRATIVE: CASE EVENT DATE: 20221201
